FAERS Safety Report 4413107-X (Version None)
Quarter: 2004Q3

REPORT INFORMATION
  Report Type: 
  Country: None (occurrence: None)
  Receive Date: 20040802
  Receipt Date: 20040802
  Transmission Date: 20050211
  Serious: Yes (Other)
  Sender: FDA-Public Use
  Company Number: None

PATIENT
  Age: 29 Year
  Sex: Female
  Weight: 54.4316 kg

DRUGS (2)
  1. PAXIL [Suspect]
     Indication: ANXIETY
     Dosage: 20 SID ORAL
     Route: 048
     Dates: start: 20010326, end: 20040101
  2. PAROXETINE HCL [Suspect]
     Indication: ANXIETY
     Dosage: 20 SID ORAL
     Route: 048
     Dates: start: 20040101, end: 20040801

REACTIONS (7)
  - ANOREXIA [None]
  - DISTURBANCE IN ATTENTION [None]
  - IRRITABILITY [None]
  - MEMORY IMPAIRMENT [None]
  - NAUSEA [None]
  - NIGHT SWEATS [None]
  - TREMOR [None]
